FAERS Safety Report 9445069 (Version 1)
Quarter: 2013Q3

REPORT INFORMATION
  Report Type: Spontaneous
  Country: PL (occurrence: PL)
  Receive Date: 20130807
  Receipt Date: 20130807
  Transmission Date: 20140515
  Serious: Yes (Hospitalization)
  Sender: FDA-Public Use
  Company Number: PHHY2013PL083388

PATIENT
  Age: 62 Year
  Sex: Male

DRUGS (7)
  1. CICLOSPORIN [Suspect]
     Dosage: 350 MG, PER DAY
  2. CICLOSPORIN [Suspect]
     Dosage: 300 MG, PER DAY
  3. CICLOSPORIN [Suspect]
     Dosage: 150 MG, PER DAY
  4. MYCOPHENOLATE MOFETIL [Concomitant]
     Dosage: 2 G, PER DAY
  5. PREDNISONE [Concomitant]
     Dosage: 25 MG, PER DAY
  6. PREDNISONE [Concomitant]
     Dosage: 20 MG, PER DAY
  7. PREDNISONE [Concomitant]
     Dosage: 10 MG, PER DAY

REACTIONS (15)
  - Hyponatraemia [Unknown]
  - Respiratory acidosis [Unknown]
  - BK virus infection [Recovering/Resolving]
  - Hyperkalaemia [Unknown]
  - Klebsiella infection [Unknown]
  - Rotavirus infection [Unknown]
  - Vomiting [Unknown]
  - Blood creatinine increased [Unknown]
  - Nausea [Unknown]
  - Diarrhoea [Unknown]
  - Hypotonia [Unknown]
  - Tachycardia [Unknown]
  - Pyrexia [Unknown]
  - Dysuria [Unknown]
  - Immunosuppressant drug level increased [Unknown]
